FAERS Safety Report 20128142 (Version 1)
Quarter: 2021Q4

REPORT INFORMATION
  Report Type: Spontaneous
  Country: US (occurrence: US)
  Receive Date: 20211129
  Receipt Date: 20211129
  Transmission Date: 20220303
  Serious: Yes (Other)
  Sender: FDA-Public Use
  Company Number: US-Techdow-2021Techdow000768

PATIENT
  Age: 52 Year
  Sex: Female

DRUGS (4)
  1. HEPARIN SODIUM [Suspect]
     Active Substance: HEPARIN SODIUM
     Indication: Thrombosis prophylaxis
     Dosage: 3100 UNITS
  2. HEPARIN SODIUM [Suspect]
     Active Substance: HEPARIN SODIUM
     Indication: Thrombosis prophylaxis
     Dosage: 42000U
  3. HEPARIN SODIUM [Suspect]
     Active Substance: HEPARIN SODIUM
     Indication: Thrombosis prophylaxis
     Dosage: 5000U
     Route: 058
  4. HEPARIN SODIUM [Suspect]
     Active Substance: HEPARIN SODIUM
     Indication: Thrombosis prophylaxis
     Dosage: 5000U,BID
     Route: 058

REACTIONS (7)
  - Liver injury [Recovering/Resolving]
  - Hypoglycaemia [Recovering/Resolving]
  - Hyperlactacidaemia [Recovered/Resolved]
  - Atrial fibrillation [Recovered/Resolved]
  - Lethargy [Unknown]
  - Encephalopathy [Unknown]
  - Pyrexia [Recovered/Resolved]
